FAERS Safety Report 20375802 (Version 1)
Quarter: 2022Q1

REPORT INFORMATION
  Report Type: Spontaneous
  Country: US (occurrence: None)
  Receive Date: 20220125
  Receipt Date: 20220125
  Transmission Date: 20220423
  Serious: No
  Sender: FDA-Public Use
  Company Number: None

PATIENT
  Sex: Female

DRUGS (4)
  1. LEUPROLIDE ACETATE [Suspect]
     Active Substance: LEUPROLIDE ACETATE
     Indication: Assisted fertilisation
     Dosage: FREQUENCY : ONCE;?
     Route: 058
     Dates: start: 20210702, end: 20211118
  2. MENOPUR [Suspect]
     Active Substance: FOLLITROPIN\LUTEINIZING HORMONE
     Indication: Assisted fertilisation
     Dosage: OTHER QUANTITY : 150 UNITS;?FREQUENCY : DAILY;?
     Route: 058
     Dates: start: 20210702, end: 20211118
  3. SULFASALAZINE [Concomitant]
     Active Substance: SULFASALAZINE
  4. HUMIRA [Concomitant]
     Active Substance: ADALIMUMAB

REACTIONS (1)
  - Rheumatoid arthritis [None]
